APPROVED DRUG PRODUCT: MONTELUKAST SODIUM
Active Ingredient: MONTELUKAST SODIUM
Strength: EQ 10MG BASE
Dosage Form/Route: TABLET;ORAL
Application: A203432 | Product #001
Applicant: AJANTA PHARMA LTD
Approved: Jul 31, 2015 | RLD: No | RS: No | Type: DISCN